FAERS Safety Report 23728193 (Version 1)
Quarter: 2024Q2

REPORT INFORMATION
  Report Type: Spontaneous
  Country: US (occurrence: None)
  Receive Date: 20240410
  Receipt Date: 20240410
  Transmission Date: 20240716
  Serious: Yes (Hospitalization, Other)
  Sender: FDA-Public Use
  Company Number: US-Unichem Pharmaceuticals (USA) Inc-UCM202404-000354

PATIENT
  Age: 71 Year
  Sex: Female

DRUGS (3)
  1. AMITRIPTYLINE HYDROCHLORIDE [Suspect]
     Active Substance: AMITRIPTYLINE HYDROCHLORIDE
     Indication: Depression
  2. CIMETIDINE [Suspect]
     Active Substance: CIMETIDINE
     Indication: Gastrooesophageal reflux disease
     Dosage: UNKNOWN
  3. CARDIZEM [Concomitant]
     Active Substance: DILTIAZEM HYDROCHLORIDE
     Indication: Hypertension
     Dosage: UNKNOWN

REACTIONS (7)
  - Unresponsive to stimuli [Unknown]
  - Confusional state [Unknown]
  - Hypotension [Unknown]
  - Tachycardia [Recovered/Resolved]
  - Drug level increased [Unknown]
  - Drug interaction [Unknown]
  - Toxicity to various agents [Unknown]
